FAERS Safety Report 5530916-4 (Version None)
Quarter: 2007Q4

REPORT INFORMATION
  Report Type: 
  Country: None (occurrence: None)
  Receive Date: 20071130
  Receipt Date: 20071119
  Transmission Date: 20080405
  Serious: Yes (Other)
  Sender: FDA-Public Use
  Company Number: US-PFIZER INC-2007064387

PATIENT
  Sex: Female

DRUGS (6)
  1. LYRICA [Suspect]
     Indication: PAIN
  2. LYRICA [Suspect]
     Indication: BURNING SENSATION
  3. LYRICA [Suspect]
     Indication: RADICULITIS
  4. LYRICA [Suspect]
     Indication: SPINAL COLUMN STENOSIS
  5. NEURONTIN [Concomitant]
     Indication: PAIN
  6. NEURONTIN [Concomitant]
     Indication: BURNING SENSATION

REACTIONS (2)
  - OEDEMA PERIPHERAL [None]
  - PAIN [None]
